FAERS Safety Report 7478472-8 (Version None)
Quarter: 2011Q2

REPORT INFORMATION
  Report Type: 
  Country: None (occurrence: None)
  Receive Date: 20110513
  Receipt Date: 20100803
  Transmission Date: 20111010
  Serious: Yes (Other)
  Sender: FDA-Public Use
  Company Number: US-PFIZER INC-2010034262

PATIENT
  Age: 40 Year
  Sex: Female
  Weight: 132 kg

DRUGS (2)
  1. CELEBREX [Suspect]
     Indication: PAIN
     Dosage: 200 MG
     Dates: start: 20100101
  2. LODINE [Suspect]
     Dosage: UNK

REACTIONS (9)
  - FEELING DRUNK [None]
  - FATIGUE [None]
  - DYSARTHRIA [None]
  - DIZZINESS [None]
  - NAUSEA [None]
  - GAIT DISTURBANCE [None]
  - DRUG INEFFECTIVE [None]
  - HEADACHE [None]
  - SOMNOLENCE [None]
